FAERS Safety Report 4919795-3 (Version None)
Quarter: 2006Q1

REPORT INFORMATION
  Report Type: 
  Country: None (occurrence: None)
  Receive Date: 20060217
  Receipt Date: 20060207
  Transmission Date: 20060701
  Serious: Yes (Other)
  Sender: FDA-Public Use
  Company Number: 2006019228

PATIENT
  Age: 71 Year
  Sex: Male
  Weight: 90.7194 kg

DRUGS (6)
  1. LIPITOR [Suspect]
     Indication: BLOOD CHOLESTEROL INCREASED
     Dosage: 10 MG (10 MG, 1 IN 1 D)
  2. LIPITOR [Suspect]
     Indication: BLOOD TRIGLYCERIDES
     Dosage: 10 MG (10 MG, 1 IN 1 D)
  3. LIPITOR [Suspect]
     Indication: LOW DENSITY LIPOPROTEIN INCREASED
     Dosage: 10 MG (10 MG, 1 IN 1 D)
  4. VALIUM [Concomitant]
  5. ACETYLSALICYLIC ACID SRT [Concomitant]
  6. LANOXIN [Concomitant]

REACTIONS (5)
  - ARTHRITIS [None]
  - DRUG EFFECT DECREASED [None]
  - HIGH DENSITY LIPOPROTEIN DECREASED [None]
  - HYPERTONIC BLADDER [None]
  - JOINT INJURY [None]
